FAERS Safety Report 7014808-X (Version None)
Quarter: 2010Q3

REPORT INFORMATION
  Report Type: 
  Country: None (occurrence: None)
  Receive Date: 20100927
  Receipt Date: 20100922
  Transmission Date: 20110219
  Serious: Yes (Other)
  Sender: FDA-Public Use
  Company Number: JP-BRISTOL-MYERS SQUIBB COMPANY-15295231

PATIENT
  Age: 62 Year
  Sex: Female

DRUGS (4)
  1. MAXIPIME [Suspect]
     Route: 041
  2. NEU-UP [Concomitant]
     Route: 041
  3. ENDOXAN [Concomitant]
     Route: 042
  4. ONCOVIN [Concomitant]
     Route: 041

REACTIONS (1)
  - INTERSTITIAL LUNG DISEASE [None]
